FAERS Safety Report 18502346 (Version 1)
Quarter: 2020Q4

REPORT INFORMATION
  Report Type: Other
  Country: US (occurrence: US)
  Receive Date: 20201113
  Receipt Date: 20201113
  Transmission Date: 20210114
  Serious: No
  Sender: FDA-Public Use
  Company Number: US-LEADIANT BIOSCIENCES INC-2020STPI000253

PATIENT
  Age: 41 Year
  Sex: Female

DRUGS (8)
  1. PROCRIT [Concomitant]
     Active Substance: ERYTHROPOIETIN
  2. CYSTARAN [Suspect]
     Active Substance: CYSTEAMINE HYDROCHLORIDE
     Indication: CYSTINOSIS
     Dosage: 1 GTT DROPS
     Route: 047
     Dates: start: 20151103
  3. IMURAN [Concomitant]
     Active Substance: AZATHIOPRINE
  4. POTASSIUM CHLORIDE. [Concomitant]
     Active Substance: POTASSIUM CHLORIDE
  5. CYSTAGON [Concomitant]
     Active Substance: CYSTEAMINE BITARTRATE
  6. PREDNISONE. [Concomitant]
     Active Substance: PREDNISONE
  7. SODIUM BICARBONATE. [Concomitant]
     Active Substance: SODIUM BICARBONATE
  8. LEVOCARNITIN [Concomitant]

REACTIONS (1)
  - Eye pain [Not Recovered/Not Resolved]

NARRATIVE: CASE EVENT DATE: 202005
